FAERS Safety Report 8354957-7 (Version None)
Quarter: 2012Q2

REPORT INFORMATION
  Report Type: 
  Country: None (occurrence: None)
  Receive Date: 20120511
  Receipt Date: 20120503
  Transmission Date: 20120825
  Serious: No
  Sender: FDA-Public Use
  Company Number: US-B.I. PHARMACEUTICALS,INC./RIDGEFIELD-2012-BP-06331BP

PATIENT
  Sex: Female
  Weight: 68.04 kg

DRUGS (3)
  1. PRADAXA [Suspect]
     Dosage: 150 MG
     Dates: start: 20120403
  2. AMIODARONE HCL [Concomitant]
  3. PRADAXA [Suspect]
     Indication: ATRIAL FIBRILLATION
     Dosage: 300 MG
     Route: 048
     Dates: start: 20110105, end: 20120403

REACTIONS (1)
  - BLOOD CREATININE INCREASED [None]
